FAERS Safety Report 7734745 (Version 10)
Quarter: 2013Q3

REPORT INFORMATION
  Report Type: Report from Study
  Country: IT (occurrence: IT)
  Receive Date: 20101223
  Receipt Date: 20130809
  Transmission Date: 20140515
  Serious: Yes (Hospitalization)
  Sender: FDA-Public Use
  Company Number: IT-PFIZER INC-2010175484

PATIENT
  Age: 59 Year
  Sex: Female
  Weight: 67 kg

DRUGS (7)
  1. CP-751,871 [Suspect]
     Indication: BREAST CANCER
     Dosage: 1340 MG, EVERY 3 WEEKS
     Route: 042
     Dates: start: 20100302, end: 20101130
  2. EXEMESTANE [Suspect]
     Indication: BREAST CANCER
     Dosage: 25 MG, ONCE DAILY
     Route: 048
     Dates: start: 20100302, end: 20101221
  3. EXEMESTANE [Suspect]
     Dosage: 25 MG, ONCE DAILY
     Route: 048
     Dates: start: 20110105
  4. ATENOLOL [Concomitant]
     Indication: HYPERTENSION
     Dosage: UNK
     Dates: start: 200006
  5. SEACOR [Concomitant]
     Indication: HYPERCHOLESTEROLAEMIA
     Dosage: UNK
     Dates: start: 200601
  6. MODURETIC [Concomitant]
     Indication: HYPERTENSION
     Dosage: UNK
     Dates: start: 200006
  7. NULERON [Concomitant]
     Indication: PROPHYLAXIS
     Dosage: UNK
     Dates: start: 20091215

REACTIONS (4)
  - Aphasia [Recovered/Resolved]
  - Grand mal convulsion [Recovered/Resolved]
  - Dysarthria [Recovered/Resolved]
  - Confusional state [Recovered/Resolved]
